FAERS Safety Report 21136143 (Version 1)
Quarter: 2022Q3

REPORT INFORMATION
  Report Type: Spontaneous
  Country: JP (occurrence: JP)
  Receive Date: 20220727
  Receipt Date: 20220727
  Transmission Date: 20221027
  Serious: Yes (Death, Hospitalization, Other)
  Sender: FDA-Public Use
  Company Number: JP-KYOWAKIRIN-2022AKK011393

PATIENT

DRUGS (12)
  1. POTELIGEO [Suspect]
     Active Substance: MOGAMULIZUMAB-KPKC
     Indication: Adult T-cell lymphoma/leukaemia
     Dosage: 1 MG/KG
     Route: 042
  2. POTELIGEO [Suspect]
     Active Substance: MOGAMULIZUMAB-KPKC
     Dosage: 1 MG/KG
     Route: 042
  3. REVLIMID [Suspect]
     Active Substance: LENALIDOMIDE
     Indication: Adult T-cell lymphoma/leukaemia
     Dosage: 5 MG
     Route: 065
  4. REVLIMID [Suspect]
     Active Substance: LENALIDOMIDE
     Dosage: 10 MG
     Route: 065
  5. REVLIMID [Suspect]
     Active Substance: LENALIDOMIDE
     Dosage: 15 MG
     Route: 065
  6. REVLIMID [Suspect]
     Active Substance: LENALIDOMIDE
     Dosage: 10 MG
     Route: 065
  7. REVLIMID [Suspect]
     Active Substance: LENALIDOMIDE
     Dosage: 5 MG
     Route: 065
  8. REVLIMID [Suspect]
     Active Substance: LENALIDOMIDE
     Dosage: 7.5 MG
     Route: 065
  9. REVLIMID [Suspect]
     Active Substance: LENALIDOMIDE
     Dosage: 10 MG
     Route: 065
  10. REVLIMID [Suspect]
     Active Substance: LENALIDOMIDE
     Dosage: 10 MG
     Route: 065
  11. REVLIMID [Suspect]
     Active Substance: LENALIDOMIDE
     Dosage: 20 MG
     Route: 065
  12. GEMCITABINE [Concomitant]
     Active Substance: GEMCITABINE
     Indication: Product used for unknown indication
     Dosage: UNK
     Route: 065

REACTIONS (8)
  - Chronic kidney disease [Fatal]
  - Multiple organ dysfunction syndrome [Fatal]
  - Eye pain [Unknown]
  - Corneal disorder [Unknown]
  - Graft versus host disease [Recovering/Resolving]
  - Liver disorder [Unknown]
  - Adenovirus infection [Unknown]
  - Lung disorder [Unknown]
